FAERS Safety Report 8758857 (Version 1)
Quarter: 2012Q4

REPORT INFORMATION
  Report Type: 
  Country: MX (occurrence: MX)
  Receive Date: 20120829
  Receipt Date: 20120829
  Transmission Date: 20130627
  Serious: Yes (Other)
  Sender: FDA-Public Use
  Company Number: PHHY2012MX074144

PATIENT
  Age: 65 Year
  Sex: Female

DRUGS (3)
  1. EXELON PATCH [Suspect]
     Indication: DEMENTIA ALZHEIMER^S TYPE
     Dosage: 4.6 mg (9 mg/5cm2), daily
     Route: 062
     Dates: start: 201205
  2. MICARDIS [Concomitant]
     Dosage: 1 DF, daily
     Dates: start: 201205
  3. SENNA (SENOCOT) [Concomitant]
     Dosage: 1 DF, daily

REACTIONS (2)
  - Meniscus injury [Not Recovered/Not Resolved]
  - Fall [Not Recovered/Not Resolved]
